FAERS Safety Report 7773951-8 (Version None)
Quarter: 2011Q3

REPORT INFORMATION
  Report Type: 
  Country: None (occurrence: None)
  Receive Date: 20110921
  Receipt Date: 20110526
  Transmission Date: 20111222
  Serious: Yes (Death)
  Sender: FDA-Public Use
  Company Number: UTC-007420

PATIENT
  Age: 23 Year
  Sex: Female

DRUGS (3)
  1. TYVASO [Suspect]
     Indication: PULMONARY HYPERTENSION
     Dosage: 18-72 MICROGRAMS (18-72 MCGS),INHALATION
     Route: 055
     Dates: start: 20110325, end: 20110501
  2. DIURETICS (DIURETICS) [Concomitant]
  3. REVATIO [Concomitant]

REACTIONS (1)
  - DEATH [None]
